FAERS Safety Report 5910530-9 (Version None)
Quarter: 2008Q4

REPORT INFORMATION
  Report Type: 
  Country: None (occurrence: None)
  Receive Date: 20081007
  Receipt Date: 20080228
  Transmission Date: 20090506
  Serious: Yes (Other)
  Sender: FDA-Public Use
  Company Number: US-ASTRAZENECA-2008UW04078

PATIENT
  Age: 58 Year
  Sex: Female
  Weight: 75.7 kg

DRUGS (5)
  1. ARIMIDEX [Suspect]
     Route: 048
  2. DIAZIDE [Concomitant]
  3. NORVASC [Concomitant]
  4. SINGULAIR [Concomitant]
  5. ADVAIR DISKUS 100/50 [Concomitant]

REACTIONS (1)
  - BLOOD PRESSURE INCREASED [None]
